FAERS Safety Report 5278877-X (Version None)
Quarter: 2007Q1

REPORT INFORMATION
  Report Type: 
  Country: None (occurrence: None)
  Receive Date: 20070321
  Receipt Date: 20061130
  Transmission Date: 20070707
  Serious: Yes (Congenital Anomaly, Other)
  Sender: FDA-Public Use
  Company Number: 230005M06NLD

PATIENT
  Sex: 0

DRUGS (2)
  1. REBIF [Suspect]
     Dosage: TRANSPLACENTAL
     Route: 064
  2. REBIF [Suspect]
     Dosage: SUBCUTANEOUS
     Route: 058
     Dates: start: 20051010

REACTIONS (2)
  - ANENCEPHALY [None]
  - DRUG EXPOSURE DURING PREGNANCY [None]
